FAERS Safety Report 6136477-3 (Version None)
Quarter: 2009Q1

REPORT INFORMATION
  Report Type: 
  Country: None (occurrence: None)
  Receive Date: 20090217
  Receipt Date: 20080515
  Transmission Date: 20090719
  Serious: No
  Sender: FDA-Public Use
  Company Number: AEUSA200800120

PATIENT
  Age: 43 Year
  Sex: Male
  Weight: 95.709 kg

DRUGS (19)
  1. PROLASTIN [Suspect]
     Indication: ALPHA-1 ANTI-TRYPSIN DEFICIENCY
     Dosage: QW; IV
     Route: 042
     Dates: start: 20071204, end: 20080501
  2. PROLASTIN [Suspect]
  3. SPIRIVA [Concomitant]
  4. LORATADINE [Concomitant]
  5. DOXEPIN HCL [Concomitant]
  6. FLUOXETINE [Concomitant]
  7. METOPROLOL [Concomitant]
  8. HYDROCODONE BITARTRATE [Concomitant]
  9. PRILOSEC [Concomitant]
  10. METHOCARBAMOL [Concomitant]
  11. LORAZEPAM [Concomitant]
  12. MULTI-VITAMINS [Concomitant]
  13. SOLU-MEDROL [Concomitant]
  14. BENADRYL [Concomitant]
  15. TYLENOL [Concomitant]
  16. SENNA-GEN [Concomitant]
  17. ELAVIL [Concomitant]
  18. NAPROXEN [Concomitant]
  19. PROVENTIL-HFA [Concomitant]

REACTIONS (5)
  - BURNING SENSATION [None]
  - ERYTHEMA [None]
  - HOT FLUSH [None]
  - INFLUENZA LIKE ILLNESS [None]
  - NAUSEA [None]
